FAERS Safety Report 7937739-7 (Version None)
Quarter: 2011Q4

REPORT INFORMATION
  Report Type: 
  Country: None (occurrence: None)
  Receive Date: 20111123
  Receipt Date: 20111117
  Transmission Date: 20120403
  Serious: Yes (Hospitalization, Disabling, Other)
  Sender: FDA-Public Use
  Company Number: PHEH2011US04053

PATIENT
  Sex: Male

DRUGS (2)
  1. FANAPT [Suspect]
     Indication: PARANOIA
     Dosage: 2 MG, BID
     Route: 048
     Dates: start: 20110811, end: 20110825
  2. SEROQUEL XR [Concomitant]
     Dosage: 50 MG, QD (EVERY DAY 7PM)
     Route: 048
     Dates: start: 20110728, end: 20110811

REACTIONS (21)
  - PROSTATOMEGALY [None]
  - HYPOAESTHESIA [None]
  - DRY EYE [None]
  - PROSTATIC DISORDER [None]
  - DYSPHONIA [None]
  - THIRST [None]
  - DISTURBANCE IN ATTENTION [None]
  - PROSTATITIS [None]
  - NEURALGIA [None]
  - LEUKOPLAKIA ORAL [None]
  - EJACULATION DISORDER [None]
  - PRIAPISM [None]
  - FEELING ABNORMAL [None]
  - DIZZINESS [None]
  - ANORGASMIA [None]
  - HEART RATE IRREGULAR [None]
  - ERECTILE DYSFUNCTION [None]
  - DYSKINESIA [None]
  - TINNITUS [None]
  - FATIGUE [None]
  - APPETITE DISORDER [None]
